FAERS Safety Report 5229297-5 (Version None)
Quarter: 2007Q1

REPORT INFORMATION
  Report Type: 
  Country: None (occurrence: None)
  Receive Date: 20061201
  Receipt Date: 20060906
  Transmission Date: 20070707
  Serious: No
  Sender: FDA-Public Use
  Company Number: US200609002022

PATIENT
  Sex: Female

DRUGS (1)
  1. CYMBALTA [Suspect]
     Dosage: 20 MG, DAILY (1/D)

REACTIONS (3)
  - ANXIETY [None]
  - HEADACHE [None]
  - PAIN [None]
